FAERS Safety Report 20662459 (Version 2)
Quarter: 2023Q2

REPORT INFORMATION
  Report Type: Spontaneous
  Country: FR (occurrence: FR)
  Receive Date: 20220401
  Receipt Date: 20230502
  Transmission Date: 20230722
  Serious: Yes (Death, Life-Threatening, Hospitalization, Other)
  Sender: FDA-Public Use
  Company Number: FR-STRIDES ARCOLAB LIMITED-2022SP003262

PATIENT
  Age: 74 Year
  Sex: Male

DRUGS (8)
  1. DEXAMETHASONE [Suspect]
     Active Substance: DEXAMETHASONE
     Indication: COVID-19
     Dosage: 6 MILLIGRAM PER DAY
     Route: 065
     Dates: start: 20201023, end: 20201101
  2. DEXAMETHASONE [Suspect]
     Active Substance: DEXAMETHASONE
     Dosage: 10 MILLIGRAM, BID
     Route: 065
     Dates: start: 20201101, end: 20201121
  3. AZITHROMYCIN [Suspect]
     Active Substance: AZITHROMYCIN
     Indication: COVID-19
     Dosage: UNK
     Route: 065
     Dates: start: 20201021, end: 20201027
  4. METHYLPREDNISOLONE [Suspect]
     Active Substance: METHYLPREDNISOLONE
     Indication: COVID-19
     Dosage: 120 MILLIGRAM, BOLUS OF 120 MG (150 MG PREDNISONE EQUIVALENT)
     Route: 065
     Dates: start: 20201023, end: 202010
  5. CEFTRIAXONE [Concomitant]
     Active Substance: CEFTRIAXONE
     Indication: COVID-19
     Dosage: UNK
     Route: 065
     Dates: start: 20201021, end: 20201027
  6. ENOXAPARIN SODIUM [Concomitant]
     Active Substance: ENOXAPARIN SODIUM
     Indication: Anticoagulant therapy
     Dosage: 1.6 MILLILITER, QD
     Route: 058
     Dates: start: 202010, end: 202010
  7. OXYGEN [Concomitant]
     Active Substance: OXYGEN
     Indication: COVID-19
     Dosage: 15 LITER, 1 MIN
     Route: 065
     Dates: start: 202010
  8. OXYGEN [Concomitant]
     Active Substance: OXYGEN
     Dosage: 6 LITER, 1 MIN
     Route: 065

REACTIONS (17)
  - Multiple organ dysfunction syndrome [Fatal]
  - Acute kidney injury [Fatal]
  - Pulmonary embolism [Fatal]
  - Coinfection [Fatal]
  - Haemodynamic instability [Fatal]
  - Cytomegalovirus viraemia [Fatal]
  - Cardiac failure acute [Fatal]
  - Metabolic alkalosis [Fatal]
  - Bronchopulmonary aspergillosis [Fatal]
  - Mucormycosis [Fatal]
  - Pseudomonas infection [Fatal]
  - Pneumonia [Fatal]
  - Stenotrophomonas infection [Fatal]
  - Herpes simplex [Fatal]
  - Respiratory distress [Unknown]
  - Tachypnoea [Unknown]
  - Off label use [Unknown]

NARRATIVE: CASE EVENT DATE: 20201001
